FAERS Safety Report 12684508 (Version 2)
Quarter: 2017Q1

REPORT INFORMATION
  Report Type: Report from Study
  Country: US (occurrence: US)
  Receive Date: 20160825
  Receipt Date: 20170201
  Transmission Date: 20170428
  Serious: Yes (Hospitalization)
  Sender: FDA-Public Use
  Company Number: US-AMGEN-USASL2016109669

PATIENT
  Age: 62 Year
  Sex: Male

DRUGS (2)
  1. REPATHA [Suspect]
     Active Substance: EVOLOCUMAB
     Indication: HYPERCHOLESTEROLAEMIA
     Dosage: 140 MG, Q2WK
     Route: 065
  2. REPATHA [Suspect]
     Active Substance: EVOLOCUMAB
     Indication: CARDIOVASCULAR DISORDER

REACTIONS (3)
  - Skin ulcer [Unknown]
  - Drug dose omission [Unknown]
  - Arteriogram [Unknown]

NARRATIVE: CASE EVENT DATE: 201606
